FAERS Safety Report 8478274-X (Version None)
Quarter: 2012Q2

REPORT INFORMATION
  Report Type: 
  Country: None (occurrence: None)
  Receive Date: 20120629
  Receipt Date: 20120629
  Transmission Date: 20120825
  Serious: Yes (Other)
  Sender: FDA-Public Use
  Company Number: SE-JNJFOC-20120613750

PATIENT
  Sex: Male

DRUGS (1)
  1. PALEXIA DEPOT [Suspect]
     Indication: PAIN
     Route: 048
     Dates: end: 20120504

REACTIONS (4)
  - DISORIENTATION [None]
  - AMNESIA [None]
  - NAUSEA [None]
  - DYSPNOEA [None]
